FAERS Safety Report 11854626 (Version 1)
Quarter: 2015Q4

REPORT INFORMATION
  Report Type: Spontaneous
  Country: US (occurrence: None)
  Receive Date: 20151218
  Receipt Date: 20151218
  Transmission Date: 20160305
  Serious: Yes (Death, Hospitalization)
  Sender: FDA-Public Use
  Company Number: None

PATIENT
  Age: 46 Year
  Sex: Male
  Weight: 86.18 kg

DRUGS (3)
  1. ADVAIR HFA [Concomitant]
     Active Substance: FLUTICASONE PROPIONATE\SALMETEROL XINAFOATE
  2. BREO ELLIPTA [Suspect]
     Active Substance: FLUTICASONE FUROATE\VILANTEROL TRIFENATATE
     Indication: ASTHMA
     Dosage: INHALE 1 PUFF BY MOUTH EVERY DAY
  3. ALLBUTEROL [Concomitant]

REACTIONS (5)
  - Cardiac disorder [None]
  - Chest pain [None]
  - Condition aggravated [None]
  - Cardiomegaly [None]
  - Dyspnoea [None]

NARRATIVE: CASE EVENT DATE: 20151102
